FAERS Safety Report 6218626-1 (Version None)
Quarter: 2009Q2

REPORT INFORMATION
  Report Type: 
  Country: None (occurrence: None)
  Receive Date: 20090608
  Receipt Date: 20090602
  Transmission Date: 20091009
  Serious: Yes (Hospitalization)
  Sender: FDA-Public Use
  Company Number: IN-ROCHE-635866

PATIENT
  Age: 28 Year
  Sex: Male

DRUGS (4)
  1. DIAZEPAM [Suspect]
     Indication: HYPERTONIA
     Dosage: ROUTE: INTRAVENOUS BOLUS; ADDITIONAL INDICATION: CONTROL OF AGITATION
     Route: 042
  2. DIAZEPAM [Suspect]
     Route: 042
  3. CLONIDINE [Concomitant]
  4. LORAZEPAM [Concomitant]
     Route: 048

REACTIONS (2)
  - FAECAL INCONTINENCE [None]
  - SINUS TACHYCARDIA [None]
